FAERS Safety Report 7227514-3 (Version None)
Quarter: 2011Q1

REPORT INFORMATION
  Report Type: 
  Country: None (occurrence: None)
  Receive Date: 20110105
  Receipt Date: 20101221
  Transmission Date: 20110831
  Serious: Yes (Other)
  Sender: FDA-Public Use
  Company Number: 024230

PATIENT
  Age: 85 Year
  Sex: Female

DRUGS (1)
  1. KEPPRA [Suspect]
     Indication: EPILEPSY
     Dosage: (250 MGBID), (500 MG BID)

REACTIONS (3)
  - PRODUCT QUALITY ISSUE [None]
  - COMPLEX PARTIAL SEIZURES [None]
  - GLOMERULAR FILTRATION RATE ABNORMAL [None]
